FAERS Safety Report 11695127 (Version 1)
Quarter: 2015Q4

REPORT INFORMATION
  Report Type: Spontaneous
  Country: US (occurrence: US)
  Receive Date: 20151103
  Receipt Date: 20151103
  Transmission Date: 20160304
  Serious: Yes (Other)
  Sender: FDA-Public Use
  Company Number: US-CONCORDIA PHARMACEUTICALS INC.-CO-PL-US-2015-326

PATIENT

DRUGS (2)
  1. PLAQUENIL [Suspect]
     Active Substance: HYDROXYCHLOROQUINE SULFATE
     Route: 065
  2. ARAVA [Suspect]
     Active Substance: LEFLUNOMIDE

REACTIONS (5)
  - Joint dislocation [Unknown]
  - Device dislocation [None]
  - Joint arthroplasty [None]
  - Humerus fracture [None]
  - Ankle arthroplasty [None]

NARRATIVE: CASE EVENT DATE: 201502
